FAERS Safety Report 9994948 (Version 2)
Quarter: 2014Q1

REPORT INFORMATION
  Report Type: Spontaneous
  Country: US (occurrence: None)
  Receive Date: 20140306
  Receipt Date: 20140318
  Transmission Date: 20141002
  Serious: Yes (Other)
  Sender: FDA-Public Use
  Company Number: AUR-APL-2014-02390

PATIENT
  Age: 8 Month
  Sex: Male

DRUGS (1)
  1. TRIMETHOPRIM+SULFAMETHOXAZOLE [Suspect]
     Indication: PYREXIA

REACTIONS (10)
  - Rash papular [None]
  - Impetigo [None]
  - Pyrexia [None]
  - Vomiting [None]
  - Diarrhoea [None]
  - Hypophagia [None]
  - Local swelling [None]
  - Swelling face [None]
  - Rhinorrhoea [None]
  - Hypersensitivity vasculitis [None]
